FAERS Safety Report 20405566 (Version 2)
Quarter: 2022Q2

REPORT INFORMATION
  Report Type: Spontaneous
  Country: IN (occurrence: IN)
  Receive Date: 20220131
  Receipt Date: 20220531
  Transmission Date: 20220721
  Serious: Yes (Other)
  Sender: FDA-Public Use
  Company Number: IN-PFIZER INC-2020353892

PATIENT
  Age: 77 Year
  Sex: Female

DRUGS (11)
  1. PALBOCICLIB [Suspect]
     Active Substance: PALBOCICLIB
     Indication: Breast cancer metastatic
     Dosage: 125 MG, 1X/DAY
     Route: 048
     Dates: start: 20200910
  2. PALBOCICLIB [Suspect]
     Active Substance: PALBOCICLIB
     Dosage: 125 MG, 1X/DAY
     Route: 048
     Dates: start: 20210615
  3. PALBOCICLIB [Suspect]
     Active Substance: PALBOCICLIB
     Dosage: 125 MG, CYCLIC (3WEEKS ON 1WEEK OFF)
     Dates: end: 202204
  4. PALBOCICLIB [Suspect]
     Active Substance: PALBOCICLIB
     Dosage: 100 MG, 1X/DAY
     Route: 048
     Dates: start: 202204
  5. LETROZOLE [Concomitant]
     Active Substance: LETROZOLE
     Dosage: 2.5 MG, 1X/DAY(1-0-0 )
  6. CCM [Concomitant]
     Dosage: 250 MG, ALTERNATE DAY (1-0-0 )
  7. UPRISE D3 [Concomitant]
     Dosage: 1 DF, MONTHLY (60K, 1 TAB ONCE A MONTH )
  8. XGEVA [Concomitant]
     Active Substance: DENOSUMAB
     Dosage: 120 MG
     Route: 058
     Dates: start: 20210908
  9. VENUSIA MAX [Concomitant]
     Dosage: UNK, 2X/DAY (1-0-1 )
  10. DUOLIN [IPRATROPIUM BROMIDE;SALBUTAMOL] [Concomitant]
     Dosage: UNK, 3X/DAY (2-2-2)
  11. BUDESONIDE [Concomitant]
     Active Substance: BUDESONIDE
     Dosage: UNK, 2X/DAY (2-0-2 )

REACTIONS (10)
  - Hypertension [Unknown]
  - Neutropenia [Unknown]
  - Back pain [Unknown]
  - Blood calcium increased [Unknown]
  - Neoplasm progression [Unknown]
  - Full blood count decreased [Unknown]
  - Cough [Unknown]
  - Dyspnoea [Unknown]
  - Wheezing [Unknown]
  - Dizziness [Unknown]

NARRATIVE: CASE EVENT DATE: 20210828
